FAERS Safety Report 7136010-3 (Version None)
Quarter: 2010Q4

REPORT INFORMATION
  Report Type: 
  Country: None (occurrence: None)
  Receive Date: 20101204
  Receipt Date: 20100930
  Transmission Date: 20110411
  Serious: Yes (Hospitalization)
  Sender: FDA-Public Use
  Company Number: US-BAYER-201037952NA

PATIENT
  Age: 19 Year
  Sex: Female
  Weight: 102.27 kg

DRUGS (8)
  1. YASMIN [Suspect]
     Dosage: PFS: 2006, MEDICAL RECORDS: 2005.
     Route: 048
     Dates: end: 20070801
  2. OMEPRAZOLE [Concomitant]
     Route: 065
  3. LEVOTHROID [Concomitant]
     Indication: THYROID DISORDER
     Route: 065
  4. MEDROXYPROGESTERONE [Concomitant]
     Dosage: PHARMACY RECORDS: DISPENSED IN JUL 2005 , FEB 2008, JUL 2009 AND MAY 2010;
  5. TRIVORA-21 [Concomitant]
     Dosage: PHARMACY RECORDS: NOV 2008
     Route: 065
  6. ZANTAC [Concomitant]
     Route: 065
  7. FLEXERIL [Concomitant]
  8. ALBUTEROL [Concomitant]
     Route: 055

REACTIONS (2)
  - CHOLELITHIASIS [None]
  - GASTRITIS [None]
